FAERS Safety Report 5033973-7 (Version None)
Quarter: 2006Q2

REPORT INFORMATION
  Report Type: 
  Country: None (occurrence: None)
  Receive Date: 20060511
  Receipt Date: 20060223
  Transmission Date: 20061013
  Serious: Yes (Hospitalization)
  Sender: FDA-Public Use
  Company Number: US200602004139

PATIENT
  Sex: Female

DRUGS (1)
  1. KEFLEX [Suspect]
     Indication: SINUSITIS
     Dosage: ORAL
     Route: 048
     Dates: start: 20060109

REACTIONS (4)
  - CYSTITIS [None]
  - KIDNEY INFECTION [None]
  - NAUSEA [None]
  - STOMACH DISCOMFORT [None]
